FAERS Safety Report 22348088 (Version 1)
Quarter: 2023Q2

REPORT INFORMATION
  Report Type: Spontaneous
  Country: BE (occurrence: BE)
  Receive Date: 20230522
  Receipt Date: 20230522
  Transmission Date: 20230721
  Serious: Yes (Hospitalization, Other)
  Sender: FDA-Public Use
  Company Number: BE-PFIZER INC-PV202300047066

PATIENT
  Age: 59 Year
  Sex: Female

DRUGS (1)
  1. ROSUVASTATIN [Suspect]
     Active Substance: ROSUVASTATIN
     Indication: Hypercholesterolaemia
     Dosage: 10 MG, QD (10 MG, 1X/DAY)
     Route: 048
     Dates: start: 20211103, end: 20211218

REACTIONS (10)
  - Type 1 diabetes mellitus [Not Recovered/Not Resolved]
  - Hyperglycaemia [Unknown]
  - Polydipsia [Unknown]
  - Pollakiuria [Unknown]
  - Vision blurred [Unknown]
  - Malaise [Unknown]
  - Pyrexia [Recovered/Resolved]
  - Weight decreased [Unknown]
  - Asthenia [Unknown]
  - Muscle spasms [Unknown]

NARRATIVE: CASE EVENT DATE: 20211128
